FAERS Safety Report 7540750-1 (Version None)
Quarter: 2011Q2

REPORT INFORMATION
  Report Type: 
  Country: None (occurrence: None)
  Receive Date: 20110610
  Receipt Date: 20110603
  Transmission Date: 20111010
  Serious: Yes (Hospitalization)
  Sender: FDA-Public Use
  Company Number: DE-ROCHE-780715

PATIENT
  Sex: Male
  Weight: 69 kg

DRUGS (2)
  1. ERLOTINIB HYDROCHLORIDE [Suspect]
     Indication: NON-SMALL CELL LUNG CANCER
     Dosage: FORM: PILL, UNIT: 30, LAST DOSE PRIOR TO SAE: 2 SEP 2009, PERMANENTLY DISCONTINUED
     Route: 065
     Dates: start: 20080526, end: 20090902
  2. BEVACIZUMAB [Suspect]
     Indication: NON-SMALL CELL LUNG CANCER
     Dosage: UNIT: 3, LAST DOSE PRIOR TO SAE: 23 SEP 2009, PERMANENTLY DISCONTINUED
     Route: 042
     Dates: start: 20080526, end: 20090923

REACTIONS (2)
  - PLEURAL EFFUSION [None]
  - DYSPNOEA [None]
